FAERS Safety Report 13828948 (Version 1)
Quarter: 2017Q3

REPORT INFORMATION
  Report Type: Report from Study
  Country: KR (occurrence: KR)
  Receive Date: 20170803
  Receipt Date: 20170803
  Transmission Date: 20171127
  Serious: Yes (Other)
  Sender: FDA-Public Use
  Company Number: KR-ROCHE-1969951

PATIENT

DRUGS (1)
  1. CAPECITABINE. [Suspect]
     Active Substance: CAPECITABINE
     Indication: RECTAL CANCER
     Dosage: BEGINNING ON DAY 1 OF RT
     Route: 048

REACTIONS (9)
  - Palmar-plantar erythrodysaesthesia syndrome [Unknown]
  - Fistula [Unknown]
  - Proctitis [Unknown]
  - Leukopenia [Unknown]
  - Pelvic abscess [Unknown]
  - Thrombocytopenia [Unknown]
  - Anaemia [Unknown]
  - Dermatitis [Unknown]
  - Ileus [Unknown]
